FAERS Safety Report 22594515 (Version 1)
Quarter: 2023Q2

REPORT INFORMATION
  Report Type: Spontaneous
  Country: US (occurrence: US)
  Receive Date: 20230613
  Receipt Date: 20230613
  Transmission Date: 20230721
  Serious: Yes (Life-Threatening, Hospitalization, Other)
  Sender: FDA-Public Use
  Company Number: US-PFIZER INC-PV202300102497

PATIENT
  Age: 32 Year
  Sex: Female

DRUGS (3)
  1. LEVOFLOXACIN [Suspect]
     Active Substance: LEVOFLOXACIN
     Indication: Lymph node tuberculosis
     Dosage: UNK
  2. CAPREOMYCIN [Suspect]
     Active Substance: CAPREOMYCIN
     Indication: Lymph node tuberculosis
     Dosage: UNK
  3. ETHAMBUTOL [Suspect]
     Active Substance: ETHAMBUTOL HYDROCHLORIDE
     Indication: Lymph node tuberculosis
     Dosage: UNK

REACTIONS (2)
  - Drug-induced liver injury [Recovering/Resolving]
  - Hepatitis B reactivation [Recovering/Resolving]
